FAERS Safety Report 10023477 (Version 1)
Quarter: 2013Q4

REPORT INFORMATION
  Report Type: Spontaneous
  Country: US (occurrence: None)
  Receive Date: 20131230
  Receipt Date: 20131230
  Transmission Date: 20140711
  Serious: Yes (Other)
  Sender: FDA-Public Use
  Company Number: 2009S1006392

PATIENT
  Age: 48 Year
  Sex: Female

DRUGS (8)
  1. FLEET PHOSPHO-SODA ORAL SALINE LAXATIVE, GINGER-LEMON FLAVOR [Suspect]
     Indication: COLONOSCOPY
     Dosage: 90 ML, 2 IN 24 HOURS, ORAL
     Route: 048
     Dates: start: 20070607, end: 20070607
  2. ZYRTEC (CETIRIZINE HYDROCHLORIDE) [Concomitant]
  3. LEVABID (HYOSCYAMINE SULFATE) [Concomitant]
  4. PRILOSEC (OMEPRAZOLE) [Concomitant]
  5. REGLAN (METOCLOPRAMIDE) [Concomitant]
  6. ATIVAN (LORAZEPAM) [Concomitant]
  7. CHANTIX (VARENICLINE TARTRATE) [Concomitant]
  8. NAPROSYN (NAPROXEN) [Concomitant]

REACTIONS (4)
  - Renal disorder [None]
  - Renal impairment [None]
  - Renal failure [None]
  - Renal tubular disorder [None]
